FAERS Safety Report 18851663 (Version 1)
Quarter: 2021Q1

REPORT INFORMATION
  Report Type: Spontaneous
  Country: US (occurrence: US)
  Receive Date: 20210204
  Receipt Date: 20210204
  Transmission Date: 20210420
  Serious: Yes (Hospitalization)
  Sender: FDA-Public Use
  Company Number: None

PATIENT
  Age: 78 Year
  Sex: Male
  Weight: 104.7 kg

DRUGS (2)
  1. COPANLISIB. [Suspect]
     Active Substance: COPANLISIB
     Indication: PROSTATE CANCER METASTATIC
     Route: 042
     Dates: start: 20200820, end: 20200820
  2. RUCAPARIB [Suspect]
     Active Substance: RUCAPARIB
     Indication: PROSTATE CANCER METASTATIC
     Route: 048
     Dates: start: 20200820, end: 20200820

REACTIONS (3)
  - Flushing [None]
  - Pyrexia [None]
  - Rash maculo-papular [None]

NARRATIVE: CASE EVENT DATE: 20200826
